FAERS Safety Report 5760934-2 (Version None)
Quarter: 2008Q2

REPORT INFORMATION
  Report Type: 
  Country: None (occurrence: None)
  Receive Date: 20080606
  Receipt Date: 20080602
  Transmission Date: 20081010
  Serious: Yes (Hospitalization)
  Sender: FDA-Public Use
  Company Number: US-BRISTOL-MYERS SQUIBB COMPANY-14212252

PATIENT
  Age: 26 Year
  Sex: Male
  Weight: 100 kg

DRUGS (4)
  1. ABILIFY [Suspect]
     Indication: SCHIZOAFFECTIVE DISORDER
     Dosage: INITIAL DOSE = 10 MG/DAY; INCREASED TO 15-20 MG/DAY(IN OCT07,JAN08 + APR08).
     Route: 048
     Dates: start: 20070701
  2. SEROQUEL [Concomitant]
     Route: 048
  3. RISPERDAL CONSTA [Concomitant]
  4. QUILONORM [Concomitant]
     Route: 048

REACTIONS (2)
  - AGGRESSION [None]
  - DYSPHORIA [None]
